FAERS Safety Report 9361276 (Version 6)
Quarter: 2014Q2

REPORT INFORMATION
  Report Type: Spontaneous
  Country: US (occurrence: US)
  Receive Date: 20130621
  Receipt Date: 20140613
  Transmission Date: 20141212
  Serious: Yes (Hospitalization, Disabling, Other)
  Sender: FDA-Public Use
  Company Number: US-009507513-1306USA009739

PATIENT
  Sex: Female
  Weight: 65.31 kg

DRUGS (6)
  1. FOSAMAX [Suspect]
     Indication: OSTEOPOROSIS
     Dosage: 10 MG, UNK
     Route: 048
     Dates: start: 199811
  2. FOSAMAX [Suspect]
     Indication: OSTEOPENIA
     Dosage: 70 MG, UNK
     Route: 048
     Dates: start: 20010702, end: 20081223
  3. FOSAMAX [Suspect]
     Dosage: 70 MG, QD
     Route: 048
     Dates: start: 20030602
  4. ALENDRONATE SODIUM [Suspect]
     Indication: OSTEOPOROSIS
     Dosage: UNK
     Route: 048
     Dates: start: 20081223, end: 20110113
  5. CALCIUM D (CALCIUM CARBONATE (+) CALCIUM CITRATE (+) CHOLECALCIFEROL) [Concomitant]
     Dosage: 600 MG/2000 IU
     Dates: start: 2001
  6. POTASSIUM (UNSPECIFIED) [Concomitant]
     Dosage: 150 MG, UNK
     Dates: start: 2001

REACTIONS (86)
  - Femur fracture [Recovered/Resolved]
  - Low turnover osteopathy [Not Recovered/Not Resolved]
  - Femur fracture [Recovered/Resolved]
  - Intramedullary rod insertion [Unknown]
  - Intramedullary rod insertion [Unknown]
  - Intervertebral disc operation [Unknown]
  - Spinal laminectomy [Unknown]
  - Spinal fusion surgery [Unknown]
  - Spinal laminectomy [Unknown]
  - Pulmonary embolism [Unknown]
  - Pulmonary embolism [Not Recovered/Not Resolved]
  - Pulmonary infarction [Unknown]
  - Blood potassium decreased [Unknown]
  - Rhabdomyolysis [Unknown]
  - Pleural effusion [Unknown]
  - Staphylococcal sepsis [Unknown]
  - Pulmonary infarction [Unknown]
  - Leukocytosis [Unknown]
  - Blood creatine phosphokinase increased [Unknown]
  - Coagulation time prolonged [Unknown]
  - Renal failure acute [Recovered/Resolved]
  - Arthropathy [Unknown]
  - Intervertebral disc degeneration [Unknown]
  - Cardiac failure congestive [Unknown]
  - Pain in extremity [Unknown]
  - Depression [Unknown]
  - Anxiety [Unknown]
  - Fibula fracture [Unknown]
  - Foot fracture [Unknown]
  - Ankle fracture [Unknown]
  - Spinal disorder [Unknown]
  - Blood pressure fluctuation [Unknown]
  - Alveolar lung disease [Unknown]
  - Chronic obstructive pulmonary disease [Unknown]
  - Leukocytosis [Unknown]
  - Fluid retention [Unknown]
  - Nocturia [Unknown]
  - Hypoxia [Unknown]
  - Memory impairment [Unknown]
  - Hypokalaemia [Unknown]
  - Confusional state [Unknown]
  - Left atrial dilatation [Unknown]
  - Electrocardiogram ST-T change [Unknown]
  - Tricuspid valve incompetence [Unknown]
  - Mitral valve incompetence [Unknown]
  - Skin abrasion [Unknown]
  - Hypoaesthesia [Unknown]
  - Pulmonary hypertension [Unknown]
  - Arteriosclerosis [Unknown]
  - Right atrial dilatation [Unknown]
  - Syncope [Unknown]
  - Rib fracture [Recovered/Resolved]
  - Interstitial lung disease [Unknown]
  - Metabolic acidosis [Unknown]
  - Fall [Unknown]
  - Chills [Unknown]
  - Fatigue [Unknown]
  - Decreased appetite [Unknown]
  - Spinal column stenosis [Not Recovered/Not Resolved]
  - Tobacco abuse [Unknown]
  - Coronary artery disease [Unknown]
  - Inappropriate schedule of drug administration [Unknown]
  - Lumbar radiculopathy [Unknown]
  - Xanthelasma [Unknown]
  - Jaw disorder [Unknown]
  - Somatoform disorder neurologic [Unknown]
  - Nervous system disorder [Unknown]
  - Radicular pain [Unknown]
  - Synovial cyst [Unknown]
  - Red blood cell sedimentation rate increased [Unknown]
  - Haemoglobin decreased [Unknown]
  - Basal ganglia infarction [Unknown]
  - Neuritis [Unknown]
  - Muscular weakness [Unknown]
  - Spinal osteoarthritis [Unknown]
  - Pain in extremity [Unknown]
  - Dizziness [Unknown]
  - Back pain [Not Recovered/Not Resolved]
  - Drug ineffective [Unknown]
  - Pruritus [Unknown]
  - Muscle spasms [Unknown]
  - Musculoskeletal pain [Unknown]
  - Musculoskeletal chest pain [Unknown]
  - Nausea [Unknown]
  - Arthralgia [Unknown]
  - Vomiting [Unknown]
